FAERS Safety Report 10644813 (Version 5)
Quarter: 2015Q4

REPORT INFORMATION
  Report Type: Spontaneous
  Country: ES (occurrence: ES)
  Receive Date: 20141211
  Receipt Date: 20151019
  Transmission Date: 20160304
  Serious: Yes (Other)
  Sender: FDA-Public Use
  Company Number: ES-AMGEN-ESPSP2014068137

PATIENT
  Age: 65 Year
  Sex: Female

DRUGS (28)
  1. ENBREL [Suspect]
     Active Substance: ETANERCEPT
     Indication: ANKYLOSING SPONDYLITIS
     Dosage: 50 MG, WEEKLY
     Route: 058
  2. OLMETEC [Concomitant]
     Active Substance: OLMESARTAN MEDOXOMIL
     Indication: HYPERTENSION
     Dosage: 1 DF, 25MG/40MG, ONCE A DAY
  3. METHOTREXATE [Concomitant]
     Active Substance: METHOTREXATE
     Indication: RHEUMATOID ARTHRITIS
     Dosage: 4 TABLETS ONCE WEEKLY
     Route: 048
  4. ARAVA [Concomitant]
     Active Substance: LEFLUNOMIDE
     Indication: PAIN
     Dosage: 1 DF, 2X/DAY
  5. SPIRAXIN [Concomitant]
     Indication: DIVERTICULUM
     Dosage: 2 DF, EACH 12 HOURS (TWICE A DAY)
  6. NOLOTIL                            /00473101/ [Concomitant]
     Active Substance: METAMIZOLE
     Indication: PAIN
     Dosage: UNK UNK, AS NECESSARY
  7. TERBASMIN                          /00199201/ [Concomitant]
     Indication: ASTHMA
     Dosage: 500 MG, EVERY 4 HRS, IF NEEDED
  8. SINGULAIR [Concomitant]
     Active Substance: MONTELUKAST SODIUM
     Indication: ASTHMA
     Dosage: 10 MG, ONCE A DAY
  9. DEFLAZACORT [Concomitant]
     Active Substance: DEFLAZACORT
     Indication: ANKYLOSING SPONDYLITIS
  10. OPTOVITE B12 [Concomitant]
     Dosage: 1 DF, MONTHLY (1 INJECTION EVERY MONTH)
  11. TOPAMAX [Concomitant]
     Active Substance: TOPIRAMATE
     Indication: HEADACHE
     Dosage: 100 MG, TWICE A DAY
  12. DEFLAZACORT [Concomitant]
     Active Substance: DEFLAZACORT
     Indication: RHEUMATOID ARTHRITIS
     Dosage: 1 DF AT 30 EVERY 24 HOURS
  13. HIDROFEROL [Concomitant]
     Active Substance: CALCIFEDIOL
     Dosage: UNK
  14. ENBREL [Suspect]
     Active Substance: ETANERCEPT
     Dosage: 50 MG, WEEKLY
     Route: 058
  15. ENBREL [Suspect]
     Active Substance: ETANERCEPT
     Dosage: 50 MG, WEEKLY
     Route: 058
     Dates: end: 2015
  16. PALEXIA [Suspect]
     Active Substance: TAPENTADOL HYDROCHLORIDE
     Indication: PAIN
     Dosage: 200 MG, EACH 12 HOURS (TWICE A DAY)
     Route: 065
  17. ACABEL 8 [Suspect]
     Active Substance: LORNOXICAM
     Indication: PAIN
     Dosage: 8 MG, EACH 12 HOURS (TWICE A DAY)
     Route: 065
  18. ACETAMINOPHEN. [Concomitant]
     Active Substance: ACETAMINOPHEN
     Indication: PAIN
     Dosage: UNK, AS NEEDED
  19. URSOBILANE [Concomitant]
     Indication: BILIARY CIRRHOSIS
     Dosage: 300 MG 2 DOSAGE THRICE A DAY
  20. ENBREL [Suspect]
     Active Substance: ETANERCEPT
     Dosage: 50 MG, WEEKLY
     Route: 058
  21. NEXIUM [Concomitant]
     Active Substance: ESOMEPRAZOLE MAGNESIUM
     Indication: PROPHYLAXIS AGAINST GASTROINTESTINAL ULCER
     Dosage: 40 MG AT BREAKFAST, 20 MG AT NIGHT,
  22. FOLIC ACID. [Concomitant]
     Active Substance: FOLIC ACID
     Dosage: 1 TABLET, WEEKLY
  23. LIPOSIT [Concomitant]
     Indication: BLOOD CHOLESTEROL
     Dosage: 1 DF, AT 80 EVERY 24 HOURS
  24. ENBREL [Suspect]
     Active Substance: ETANERCEPT
     Indication: RHEUMATOID ARTHRITIS
     Dosage: 50 MG, WEEKLY
     Route: 058
     Dates: start: 20140628
  25. LORAZEPAM. [Concomitant]
     Active Substance: LORAZEPAM
     Indication: SLEEP DISORDER
     Dosage: 5 MG, AT NIGHT, UNK
  26. SUXIDINA [Concomitant]
     Indication: GASTRITIS
     Dosage: 1 DF, THRICE A DAY
  27. SERETIDE [Concomitant]
     Active Substance: FLUTICASONE FUROATE\SALMETEROL XINAFOATE
     Indication: ASTHMA
     Dosage: 1 DF 50UG/500 UG, (TWICE A DAY)
     Route: 045
  28. METHOTREXATE [Concomitant]
     Active Substance: METHOTREXATE
     Indication: ANKYLOSING SPONDYLITIS
     Dosage: UNK

REACTIONS (16)
  - Visual impairment [Not Recovered/Not Resolved]
  - Therapeutic response delayed [Not Recovered/Not Resolved]
  - Alopecia [Not Recovered/Not Resolved]
  - Renal failure [Recovered/Resolved]
  - Condition aggravated [Not Recovered/Not Resolved]
  - Bone pain [Not Recovered/Not Resolved]
  - Acute sinusitis [Not Recovered/Not Resolved]
  - Ovarian cyst [Not Recovered/Not Resolved]
  - Asthma [Not Recovered/Not Resolved]
  - Drug ineffective [Unknown]
  - Injection site inflammation [Not Recovered/Not Resolved]
  - Influenza [Recovering/Resolving]
  - Headache [Not Recovered/Not Resolved]
  - Tooth disorder [Not Recovered/Not Resolved]
  - Oral discomfort [Not Recovered/Not Resolved]
  - Onychoclasis [Not Recovered/Not Resolved]

NARRATIVE: CASE EVENT DATE: 2014
